FAERS Safety Report 19288671 (Version 3)
Quarter: 2021Q2

REPORT INFORMATION
  Report Type: Report from Study
  Country: FR (occurrence: FR)
  Receive Date: 20210522
  Receipt Date: 20210529
  Transmission Date: 20210717
  Serious: Yes (Life-Threatening, Hospitalization, Other)
  Sender: FDA-Public Use
  Company Number: NVSC2021FR113101

PATIENT
  Age: 69 Year
  Sex: Male

DRUGS (3)
  1. DAUNORUBICIN [Suspect]
     Active Substance: DAUNORUBICIN
     Indication: MYELODYSPLASTIC SYNDROME
     Dosage: 111 MG, DAILY
     Route: 065
     Dates: start: 20210424
  2. RYDAPT [Suspect]
     Active Substance: MIDOSTAURIN
     Indication: MYELODYSPLASTIC SYNDROME
     Dosage: 100 MG, DAILY
     Route: 065
     Dates: start: 20210430
  3. CYTARABINE. [Suspect]
     Active Substance: CYTARABINE
     Indication: MYELODYSPLASTIC SYNDROME
     Dosage: 370 MG, DAILY
     Route: 065
     Dates: start: 20210423

REACTIONS (5)
  - Respiratory distress [Recovered/Resolved]
  - Pulmonary oedema [Unknown]
  - Cardiac fibrillation [Unknown]
  - Septic shock [Not Recovered/Not Resolved]
  - Bacteraemia [Unknown]

NARRATIVE: CASE EVENT DATE: 20210516
